APPROVED DRUG PRODUCT: BUTORPHANOL TARTRATE PRESERVATIVE FREE
Active Ingredient: BUTORPHANOL TARTRATE
Strength: 2MG/ML
Dosage Form/Route: INJECTABLE;INJECTION
Application: A074626 | Product #002 | TE Code: AP
Applicant: HOSPIRA INC
Approved: Jan 23, 1997 | RLD: No | RS: Yes | Type: RX